FAERS Safety Report 5266599-0 (Version None)
Quarter: 2007Q1

REPORT INFORMATION
  Report Type: 
  Country: None (occurrence: None)
  Receive Date: 20070315
  Receipt Date: 20070304
  Transmission Date: 20070707
  Serious: Yes (Other)
  Sender: FDA-Public Use
  Company Number: US-PFIZER INC-2007017129

PATIENT
  Sex: Female
  Weight: 95.3 kg

DRUGS (3)
  1. NORVASC [Suspect]
     Indication: HYPERTENSION
  2. LIPITOR [Suspect]
     Indication: BLOOD CHOLESTEROL INCREASED
  3. ANASTROZOLE [Concomitant]

REACTIONS (1)
  - BREAST CANCER [None]
